FAERS Safety Report 6713129-X (Version None)
Quarter: 2010Q2

REPORT INFORMATION
  Report Type: 
  Country: None (occurrence: None)
  Receive Date: 20100506
  Receipt Date: 20091105
  Transmission Date: 20101027
  Serious: No
  Sender: FDA-Public Use
  Company Number: A0815387A

PATIENT
  Age: 70 Year
  Sex: Female

DRUGS (2)
  1. AMOXIL [Suspect]
     Indication: TOOTH EXTRACTION
     Route: 048
     Dates: start: 20020101, end: 20020101
  2. PREMARIN [Concomitant]

REACTIONS (1)
  - VOMITING [None]
